FAERS Safety Report 20687531 (Version 1)
Quarter: 2022Q2

REPORT INFORMATION
  Report Type: Spontaneous
  Country: US (occurrence: US)
  Receive Date: 20220408
  Receipt Date: 20220408
  Transmission Date: 20220721
  Serious: Yes (Other)
  Sender: FDA-Public Use
  Company Number: US-ORGANON-O2204USA000212

PATIENT
  Sex: Female
  Weight: 81.633 kg

DRUGS (7)
  1. SINEMET [Suspect]
     Active Substance: CARBIDOPA\LEVODOPA
     Dosage: UNK
     Route: 048
  2. GOCOVRI [Suspect]
     Active Substance: AMANTADINE
     Indication: Dyskinesia
     Dosage: 137 MILLIGRAM, HS (AT BEDTIME) ONCE DAILYFOR FIRST 7 DAYS, EXTENDED RELEASE CAPSULE
     Route: 048
     Dates: start: 2020, end: 2020
  3. GOCOVRI [Suspect]
     Active Substance: AMANTADINE
     Dosage: DOSE INCREASED TO 274 MILLIGRAM, HS (AT BEDTIME), ONE TIME A DAY, EXTENDED RELEASE CAPSULE
     Route: 048
     Dates: start: 2020
  4. IMITREX [Concomitant]
     Active Substance: SUMATRIPTAN SUCCINATE
     Dosage: 6 MG/0.5
  5. RASAGILINE [Concomitant]
     Active Substance: RASAGILINE
     Dosage: 1 MILLIGRAM
  6. ZOCOR [Concomitant]
     Active Substance: SIMVASTATIN
     Dosage: 20 MILLIGRAM
  7. CLOBETASOL [Concomitant]
     Active Substance: CLOBETASOL
     Dosage: UNK

REACTIONS (5)
  - Deep brain stimulation [Unknown]
  - Migraine [Unknown]
  - Mass [Not Recovered/Not Resolved]
  - Yawning [Not Recovered/Not Resolved]
  - Fall [Unknown]

NARRATIVE: CASE EVENT DATE: 20160101
